FAERS Safety Report 13451620 (Version 1)
Quarter: 2017Q2

REPORT INFORMATION
  Report Type: Spontaneous
  Country: US (occurrence: US)
  Receive Date: 20170418
  Receipt Date: 20170418
  Transmission Date: 20170830
  Serious: No
  Sender: FDA-Public Use
  Company Number: US-PFIZER INC-2017159704

PATIENT
  Sex: Female

DRUGS (1)
  1. XELJANZ [Suspect]
     Active Substance: TOFACITINIB CITRATE
     Dosage: 5 MG, 2X/DAY

REACTIONS (26)
  - Pain in jaw [Unknown]
  - Arthralgia [Unknown]
  - Joint swelling [Unknown]
  - Pruritus [Unknown]
  - Back pain [Unknown]
  - Musculoskeletal stiffness [Unknown]
  - Feeling abnormal [Unknown]
  - Joint crepitation [Unknown]
  - Neck pain [Unknown]
  - Dry eye [Unknown]
  - Mouth ulceration [Unknown]
  - Contusion [Unknown]
  - Paranasal sinus discomfort [Unknown]
  - Nuchal rigidity [Unknown]
  - Anxiety [Unknown]
  - Joint range of motion decreased [Unknown]
  - Myalgia [Unknown]
  - Nasal disorder [Unknown]
  - Sinus disorder [Unknown]
  - Rash [Unknown]
  - Headache [Unknown]
  - Poor quality sleep [Unknown]
  - Urticaria [Unknown]
  - Visual impairment [Unknown]
  - Muscular weakness [Unknown]
  - Spinal pain [Unknown]
